FAERS Safety Report 21063855 (Version 1)
Quarter: 2022Q3

REPORT INFORMATION
  Report Type: Spontaneous
  Country: US (occurrence: US)
  Receive Date: 20220711
  Receipt Date: 20220711
  Transmission Date: 20221026
  Serious: Yes (Other)
  Sender: FDA-Public Use
  Company Number: US-SA-SAC20220707000046

PATIENT
  Age: 59 Year
  Sex: Female

DRUGS (2)
  1. ZANTAC [Suspect]
     Active Substance: RANITIDINE HYDROCHLORIDE
     Indication: Dyspepsia
     Dosage: 75 MG, QD
     Dates: start: 200201, end: 200601
  2. ZANTAC [Suspect]
     Active Substance: RANITIDINE HYDROCHLORIDE
     Indication: Abdominal discomfort

REACTIONS (7)
  - Colorectal cancer [Unknown]
  - Hepatic cancer [Unknown]
  - Colon cancer recurrent [Unknown]
  - Small intestine carcinoma recurrent [Unknown]
  - Hepatic cancer recurrent [Unknown]
  - Pulmonary mass [Unknown]
  - Adrenal mass [Unknown]

NARRATIVE: CASE EVENT DATE: 20161101
